FAERS Safety Report 20078904 (Version 1)
Quarter: 2021Q4

REPORT INFORMATION
  Report Type: Spontaneous
  Country: US (occurrence: US)
  Receive Date: 20211117
  Receipt Date: 20211117
  Transmission Date: 20220303
  Serious: No
  Sender: FDA-Public Use
  Company Number: US-ALLERGAN-2102707US

PATIENT
  Sex: Female
  Weight: 64.853 kg

DRUGS (4)
  1. COMBIGAN [Suspect]
     Active Substance: BRIMONIDINE TARTRATE\TIMOLOL MALEATE
     Indication: Glaucoma
     Dosage: UNK, BID
     Route: 047
     Dates: start: 2010
  2. LUMIGAN [Concomitant]
     Active Substance: BIMATOPROST
     Indication: Glaucoma
     Dosage: UNK, QD
  3. Dorziolimide [Concomitant]
     Indication: Glaucoma
     Dosage: UNK UNK, BID
  4. Reopressa [Concomitant]
     Indication: Glaucoma
     Dosage: UNK, QD

REACTIONS (3)
  - Accidental exposure to product [Unknown]
  - Product dose omission issue [Unknown]
  - Product delivery mechanism issue [Unknown]
